FAERS Safety Report 8310338-3 (Version None)
Quarter: 2012Q2

REPORT INFORMATION
  Report Type: 
  Country: None (occurrence: None)
  Receive Date: 20120425
  Receipt Date: 20120418
  Transmission Date: 20120825
  Serious: Yes (Hospitalization, Other)
  Sender: FDA-Public Use
  Company Number: PHHY2012AU026303

PATIENT
  Sex: Male

DRUGS (6)
  1. CLOZARIL [Suspect]
     Indication: SCHIZOPHRENIA
     Dosage: 400 MG, UNK
     Route: 048
     Dates: start: 20040930
  2. VALPROATE SODIUM [Concomitant]
     Dosage: 1 G, BID
     Route: 048
  3. VITAMIN D [Concomitant]
     Dosage: ONE TABLET IN MORNING
     Route: 048
  4. ASPIRIN [Concomitant]
     Dosage: 100 MG, IN MORNING
     Route: 048
  5. CLOZARIL [Suspect]
     Dosage: UNK UKN, UNK
  6. THIAMINE HCL [Concomitant]
     Dosage: 100 MG, IN MORNING
     Route: 048

REACTIONS (3)
  - CEREBROVASCULAR ACCIDENT [None]
  - NEUROLOGICAL SYMPTOM [None]
  - GLIOBLASTOMA MULTIFORME [None]
